FAERS Safety Report 9797409 (Version 2)
Quarter: 2014Q1

REPORT INFORMATION
  Report Type: Spontaneous
  Country: US (occurrence: US)
  Receive Date: 20140106
  Receipt Date: 20140120
  Transmission Date: 20141002
  Serious: Yes (Hospitalization)
  Sender: FDA-Public Use
  Company Number: US-BEH-2014039855

PATIENT
  Sex: Male
  Weight: 139 kg

DRUGS (18)
  1. ZEMAIRA [Suspect]
     Indication: ALPHA-1 ANTI-TRYPSIN DEFICIENCY
     Dosage: 978 MG/VIAL
     Route: 042
  2. OXYGEN [Concomitant]
  3. ADVAIR [Concomitant]
  4. XOPENEX [Concomitant]
  5. DIPHENHYDRAMINE [Concomitant]
  6. SODIUM CHLORIDE [Concomitant]
  7. EPIPEN [Concomitant]
  8. LMX [Concomitant]
  9. LISINOPRIL [Concomitant]
  10. DESONIDE [Concomitant]
  11. FUROSEMIDE [Concomitant]
  12. POTASSIUM [Concomitant]
  13. FAMOTIDINE [Concomitant]
  14. ASPIRIN [Concomitant]
  15. METHYLPREDNISOLONE [Concomitant]
  16. RESTORIL [Concomitant]
  17. BACTRIM DS [Concomitant]
  18. PREDNISONE [Concomitant]

REACTIONS (3)
  - Influenza [Unknown]
  - Productive cough [Unknown]
  - Dyspnoea [Unknown]
